FAERS Safety Report 22074228 (Version 1)
Quarter: 2023Q1

REPORT INFORMATION
  Report Type: Report from Study
  Country: JP (occurrence: JP)
  Receive Date: 20230308
  Receipt Date: 20230308
  Transmission Date: 20230418
  Serious: Yes (Other)
  Sender: FDA-Public Use
  Company Number: JP-RECORDATI RARE DISEASE INC.-2022007244

PATIENT
  Age: 0 Year
  Sex: Male
  Weight: .923 kg

DRUGS (8)
  1. NEOPROFEN [Suspect]
     Active Substance: IBUPROFEN LYSINE
     Indication: Patent ductus arteriosus
     Dosage: 9.25 MILLIGRAM
     Route: 042
     Dates: start: 20210806, end: 20210806
  2. NEOPROFEN [Suspect]
     Active Substance: IBUPROFEN LYSINE
     Dosage: 4.50 MILLIGRAM
     Route: 042
     Dates: start: 20210807, end: 20210807
  3. NEOPROFEN [Suspect]
     Active Substance: IBUPROFEN LYSINE
     Dosage: 9 MILLIGRAM
     Route: 042
     Dates: start: 20210816, end: 20210816
  4. NEOPROFEN [Suspect]
     Active Substance: IBUPROFEN LYSINE
     Dosage: 4.50 MILLIGRAM
     Route: 042
     Dates: start: 20210817, end: 20210817
  5. NEOPROFEN [Suspect]
     Active Substance: IBUPROFEN LYSINE
     Dosage: 5 MILLIGRAM
     Route: 042
     Dates: start: 20210818, end: 20210818
  6. DOBUTAMINE [Concomitant]
     Active Substance: DOBUTAMINE HYDROCHLORIDE
     Indication: Hypotension
     Dosage: UNK
     Route: 042
     Dates: start: 20210805, end: 20210808
  7. FENTANYL [Concomitant]
     Active Substance: FENTANYL
     Indication: Sedation
     Dosage: UNK
     Route: 042
     Dates: start: 20210805, end: 20210816
  8. DOPAMINE [Concomitant]
     Active Substance: DOPAMINE HYDROCHLORIDE
     Indication: Hypotension
     Dosage: UNK
     Route: 042
     Dates: start: 20210805, end: 20210823

REACTIONS (5)
  - Posthaemorrhagic hydrocephalus [Recovered/Resolved with Sequelae]
  - Intraventricular haemorrhage [Not Recovered/Not Resolved]
  - Jaundice neonatal [Recovered/Resolved]
  - Cholestasis [Recovered/Resolved]
  - Urine output decreased [Recovered/Resolved]

NARRATIVE: CASE EVENT DATE: 20210808
